FAERS Safety Report 6820239-5 (Version None)
Quarter: 2010Q3

REPORT INFORMATION
  Report Type: 
  Country: None (occurrence: None)
  Receive Date: 20100707
  Receipt Date: 20100625
  Transmission Date: 20110219
  Serious: Yes (Death)
  Sender: FDA-Public Use
  Company Number: BR-PFIZER INC-2010079594

PATIENT
  Age: 79 Year
  Sex: Male

DRUGS (3)
  1. VIAGRA [Suspect]
     Dosage: 50 MG, UNK
     Route: 048
     Dates: start: 20060914
  2. MONOCORDIL [Concomitant]
     Dosage: UNK
     Dates: start: 20030625
  3. LEVOTHYROXINE SODIUM [Concomitant]
     Dosage: UNK

REACTIONS (2)
  - HYPERTENSION [None]
  - PULMONARY HYPERTENSION [None]
